FAERS Safety Report 5849906-7 (Version None)
Quarter: 2008Q3

REPORT INFORMATION
  Report Type: 
  Country: None (occurrence: None)
  Receive Date: 20080819
  Receipt Date: 20080807
  Transmission Date: 20090109
  Serious: Yes (Other)
  Sender: FDA-Public Use
  Company Number: US-ASTRAZENECA-2008UW01057

PATIENT
  Age: 72 Year
  Sex: Female
  Weight: 122 kg

DRUGS (3)
  1. ARIMIDEX [Suspect]
     Indication: BREAST CANCER
     Route: 048
     Dates: start: 20071001
  2. ARIMIDEX [Suspect]
     Route: 048
     Dates: start: 20080501
  3. PREMARIN [Concomitant]
     Dates: start: 19820101

REACTIONS (3)
  - CELLULITIS [None]
  - ERYTHEMA MULTIFORME [None]
  - RASH [None]
